FAERS Safety Report 20566399 (Version 1)
Quarter: 2022Q1

REPORT INFORMATION
  Report Type: Spontaneous
  Country: US (occurrence: US)
  Receive Date: 20220308
  Receipt Date: 20220308
  Transmission Date: 20220423
  Serious: Yes (Other)
  Sender: FDA-Public Use
  Company Number: US-CELLTRION INC.-2022US002607

PATIENT

DRUGS (5)
  1. RITUXIMAB [Suspect]
     Active Substance: RITUXIMAB
     Indication: Mononeuropathy multiplex
  2. HUMAN IMMUNOGLOBULIN G [Suspect]
     Active Substance: HUMAN IMMUNOGLOBULIN G
     Indication: Mononeuropathy multiplex
     Dosage: 2 GRAM PER KILOGRAM ADMINISTERED IN TWO DOSES
  3. HUMAN IMMUNOGLOBULIN G [Suspect]
     Active Substance: HUMAN IMMUNOGLOBULIN G
     Dosage: ADDITIONAL COURSES
  4. METHYLPREDNISOLONE [Suspect]
     Active Substance: METHYLPREDNISOLONE
     Indication: Mononeuropathy multiplex
     Dosage: 1 GRAM FOR 5 DOSES
     Route: 042
  5. PREDNISONE [Suspect]
     Active Substance: PREDNISONE
     Indication: Mononeuropathy multiplex
     Dosage: TAPER

REACTIONS (4)
  - Neuropathy peripheral [Unknown]
  - Disease progression [Unknown]
  - Drug resistance [Unknown]
  - Off label use [Unknown]
